FAERS Safety Report 15033884 (Version 1)
Quarter: 2018Q2

REPORT INFORMATION
  Report Type: Other
  Country: FR (occurrence: FR)
  Receive Date: 20180620
  Receipt Date: 20180620
  Transmission Date: 20180711
  Serious: Yes (Hospitalization)
  Sender: FDA-Public Use
  Company Number: FR-DENTSPLY-2018SCDP000213

PATIENT

DRUGS (1)
  1. LIDOCAINE AND PRILOCAINE [Suspect]
     Active Substance: LIDOCAINE\PRILOCAINE
     Indication: PRODUCT USED FOR UNKNOWN INDICATION
     Dosage: 55 G, UNK
     Route: 061

REACTIONS (4)
  - Cyanosis [Recovered/Resolved]
  - Overdose [None]
  - Intentional product misuse [Unknown]
  - Methaemoglobinaemia [Recovered/Resolved]
